FAERS Safety Report 18619624 (Version 1)
Quarter: 2020Q4

REPORT INFORMATION
  Report Type: Spontaneous
  Country: US (occurrence: US)
  Receive Date: 20201215
  Receipt Date: 20201215
  Transmission Date: 20210114
  Serious: No
  Sender: FDA-Public Use
  Company Number: NVSC2020US331480

PATIENT
  Sex: Female
  Weight: 59.86 kg

DRUGS (1)
  1. ILARIS [Suspect]
     Active Substance: CANAKINUMAB
     Indication: STILL^S DISEASE
     Dosage: UNK (EVERY 3 WEEKS)
     Route: 058
     Dates: start: 20201012, end: 20201012

REACTIONS (1)
  - Injection site pain [Recovering/Resolving]
